FAERS Safety Report 7787786-3 (Version None)
Quarter: 2011Q3

REPORT INFORMATION
  Report Type: 
  Country: None (occurrence: None)
  Receive Date: 20110929
  Receipt Date: 20110916
  Transmission Date: 20111222
  Serious: Yes (Other)
  Sender: FDA-Public Use
  Company Number: JP-MYLANLABS-2011S1019886

PATIENT
  Age: 6 Decade
  Sex: Female

DRUGS (11)
  1. PACLITAXEL [Concomitant]
     Indication: OVARIAN CANCER STAGE III
     Route: 065
  2. IRINOTECAN HCL [Concomitant]
     Indication: OVARIAN CANCER STAGE III
     Dosage: ON DAYS 1, 8, 15
     Route: 065
  3. CISPLATIN [Suspect]
     Indication: OVARIAN CANCER STAGE III
     Route: 065
  4. PACLITAXEL [Concomitant]
     Route: 065
  5. CARBOPLATIN [Suspect]
     Indication: OVARIAN CANCER STAGE III
     Dosage: AUC = 5 EVERY 3 WEEKS
     Route: 065
  6. CARBOPLATIN [Suspect]
     Dosage: AUC = 5 EVERY 3 WEEKS; THEN EVERY 3 MONTHS
     Route: 065
  7. CARBOPLATIN [Suspect]
     Dosage: AUC = 5 EVERY 3 MONTHS
     Route: 065
  8. IRINOTECAN HCL [Concomitant]
     Dosage: ON DAYS 1, 8, 15
     Route: 065
  9. PACLITAXEL [Concomitant]
     Route: 065
  10. PACLITAXEL [Concomitant]
     Dosage: FOR 20 COURSES; THEN EVERY 3 WEEKS
     Route: 065
  11. PACLITAXEL [Concomitant]
     Dosage: FOR 6 COURSES; THEN EVERY 3 MONTHS
     Route: 065

REACTIONS (2)
  - INAPPROPRIATE ANTIDIURETIC HORMONE SECRETION [None]
  - HYPERSENSITIVITY [None]
